FAERS Safety Report 7635381-9 (Version None)
Quarter: 2011Q3

REPORT INFORMATION
  Report Type: 
  Country: None (occurrence: None)
  Receive Date: 20110726
  Receipt Date: 20110718
  Transmission Date: 20111222
  Serious: Yes (Other)
  Sender: FDA-Public Use
  Company Number: US-ASTELLAS-2011US004005

PATIENT
  Sex: Female

DRUGS (3)
  1. FESOTERODINE [Suspect]
     Indication: PRODUCT USED FOR UNKNOWN INDICATION
     Dosage: UNK
     Route: 065
  2. VESICARE [Suspect]
     Dosage: UNK
     Route: 048
  3. 19 OTHER MEDICATIONS [Concomitant]
     Indication: PRODUCT USED FOR UNKNOWN INDICATION
     Dosage: UNK
     Route: 065

REACTIONS (2)
  - SYSTEMIC LUPUS ERYTHEMATOSUS [None]
  - MEMORY IMPAIRMENT [None]
